FAERS Safety Report 7486235-2 (Version None)
Quarter: 2011Q2

REPORT INFORMATION
  Report Type: 
  Country: None (occurrence: None)
  Receive Date: 20110517
  Receipt Date: 20110215
  Transmission Date: 20111010
  Serious: No
  Sender: FDA-Public Use
  Company Number: A0914329A

PATIENT
  Age: 66 Year
  Sex: Male

DRUGS (1)
  1. VOTRIENT [Suspect]
     Dosage: 800MG PER DAY
     Route: 048

REACTIONS (4)
  - ABDOMINAL PAIN UPPER [None]
  - THROAT IRRITATION [None]
  - NAUSEA [None]
  - VOMITING [None]
